FAERS Safety Report 23944723 (Version 1)
Quarter: 2024Q2

REPORT INFORMATION
  Report Type: Spontaneous
  Country: CN (occurrence: CN)
  Receive Date: 20240606
  Receipt Date: 20240606
  Transmission Date: 20240716
  Serious: Yes (Hospitalization, Other)
  Sender: FDA-Public Use
  Company Number: None

PATIENT
  Age: 35 Year
  Sex: Female
  Weight: 76 kg

DRUGS (6)
  1. CYCLOPHOSPHAMIDE [Suspect]
     Active Substance: CYCLOPHOSPHAMIDE
     Indication: Breast cancer female
     Dosage: 0.96 G, ONE TIME IN ONE DAY DILUTED WITH SODIUM CHLORIDE 100 ML
     Route: 041
     Dates: start: 20240514, end: 20240514
  2. DOCETAXEL [Suspect]
     Active Substance: DOCETAXEL\DOCETAXEL ANHYDROUS
     Indication: Breast cancer female
     Dosage: 140 MG, ONE TIME IN ONE DAY
     Route: 041
     Dates: start: 20240514, end: 20240514
  3. SODIUM CHLORIDE [Suspect]
     Active Substance: SODIUM CHLORIDE
     Indication: Electrolyte imbalance
     Dosage: 100 ML, ONE TIME IN ONE DAY USED TO DILUTE CYCLOPHOSPHAMIDE 0.96 G
     Route: 041
     Dates: start: 20240514, end: 20240514
  4. SODIUM CHLORIDE [Suspect]
     Active Substance: SODIUM CHLORIDE
     Indication: Therapeutic hypothermia
  5. SODIUM CHLORIDE [Suspect]
     Active Substance: SODIUM CHLORIDE
     Indication: Vehicle solution use
  6. EPIRUBICIN HYDROCHLORIDE [Suspect]
     Active Substance: EPIRUBICIN HYDROCHLORIDE
     Indication: Breast cancer female
     Dosage: 100 MG, ONE TIME IN ONE DAY
     Route: 041
     Dates: start: 20240514, end: 20240514

REACTIONS (7)
  - Gastrointestinal disorder [Recovering/Resolving]
  - Nausea [Unknown]
  - Vomiting [Unknown]
  - Myelosuppression [Recovering/Resolving]
  - Pyrexia [Unknown]
  - Granulocyte count decreased [Unknown]
  - Discomfort [Recovering/Resolving]

NARRATIVE: CASE EVENT DATE: 20240514
